FAERS Safety Report 9275429 (Version 2)
Quarter: 2013Q2

REPORT INFORMATION
  Report Type: Spontaneous
  Country: ES (occurrence: None)
  Receive Date: 20130430
  Receipt Date: 20130517
  Transmission Date: 20140414
  Serious: Yes (Hospitalization)
  Sender: FDA-Public Use
  Company Number: 2013S1000999

PATIENT
  Age: 42 Year
  Sex: Male

DRUGS (2)
  1. ALIPZA [Suspect]
     Indication: HYPERCHOLESTEROLAEMIA
     Route: 048
     Dates: start: 20121120, end: 20130202
  2. PROPRANOLOL HYDROCHLORIDE [Concomitant]

REACTIONS (1)
  - Pancreatitis [None]
